FAERS Safety Report 8310461 (Version 10)
Quarter: 2012Q4

REPORT INFORMATION
  Report Type: 
  Country: CA (occurrence: CA)
  Receive Date: 20111223
  Receipt Date: 20121213
  Transmission Date: 20130627
  Serious: Yes (Death, Hospitalization)
  Sender: FDA-Public Use
  Company Number: CA-ROCHE-1024071

PATIENT
  Age: 62 Year
  Sex: Female

DRUGS (8)
  1. XOLAIR [Suspect]
     Indication: ASTHMA
     Route: 058
     Dates: start: 20101008, end: 20120601
  2. XOLAIR [Suspect]
     Route: 058
     Dates: start: 20110329
  3. SINGULAIR [Concomitant]
  4. ADVAIR [Concomitant]
  5. ALVESCO [Concomitant]
  6. VENTOLIN [Concomitant]
  7. PREDNISONE [Concomitant]
  8. CLAVULIN [Concomitant]
     Indication: BRONCHITIS
     Route: 065
     Dates: start: 20110323

REACTIONS (15)
  - Death [Fatal]
  - Arteriosclerosis [Unknown]
  - Dyspnoea [Unknown]
  - Lung infection [Unknown]
  - Pulmonary oedema [Unknown]
  - Bronchitis viral [Unknown]
  - Phlebitis [Unknown]
  - Loss of consciousness [Unknown]
  - Pneumonia [Unknown]
  - Pulmonary congestion [Unknown]
  - Asthenia [Unknown]
  - Bronchitis [Unknown]
  - Gastroenteritis [Unknown]
  - Nasopharyngitis [Unknown]
  - Poor quality sleep [Unknown]
